FAERS Safety Report 10233379 (Version 5)
Quarter: 2014Q4

REPORT INFORMATION
  Report Type: Spontaneous
  Country: IT (occurrence: IT)
  Receive Date: 20140612
  Receipt Date: 20141002
  Transmission Date: 20150528
  Serious: Yes (Death)
  Sender: FDA-Public Use
  Company Number: IT-PFIZER INC-2014158137

PATIENT
  Age: 64 Year
  Sex: Male

DRUGS (7)
  1. ZYVOXID [Suspect]
     Active Substance: LINEZOLID
     Indication: PNEUMONIA
     Dosage: 1200 MG, DAILY
     Route: 041
     Dates: start: 20140602, end: 20140606
  2. AMBISOME [Concomitant]
     Active Substance: AMPHOTERICIN B
     Route: 042
  3. CYMEVENE [Concomitant]
     Active Substance: GANCICLOVIR
     Route: 042
  4. SOLU-MEDROL [Concomitant]
     Active Substance: METHYLPREDNISOLONE SODIUM SUCCINATE
     Route: 042
  5. AZATHIOPRINE. [Concomitant]
     Active Substance: AZATHIOPRINE
     Route: 048
  6. PROGRAF [Concomitant]
     Active Substance: TACROLIMUS\TACROLIMUS ANHYDROUS
  7. MERREM [Concomitant]
     Active Substance: MEROPENEM
     Route: 042

REACTIONS (2)
  - Metabolic acidosis [Fatal]
  - Multi-organ failure [Fatal]

NARRATIVE: CASE EVENT DATE: 20140606
